FAERS Safety Report 15563438 (Version 4)
Quarter: 2018Q4

REPORT INFORMATION
  Report Type: Spontaneous
  Country: US (occurrence: US)
  Receive Date: 20181029
  Receipt Date: 20181211
  Transmission Date: 20190205
  Serious: No
  Sender: FDA-Public Use
  Company Number: US-PFIZER INC-2018431921

PATIENT
  Age: 82 Year
  Sex: Female
  Weight: 205 kg

DRUGS (2)
  1. CELEBREX [Suspect]
     Active Substance: CELECOXIB
     Indication: ARTHRITIS
     Dosage: 200 MG, 1X/DAY
  2. CELEBREX [Suspect]
     Active Substance: CELECOXIB
     Dosage: 100 MG, 1X/DAY

REACTIONS (3)
  - Product dispensing error [Unknown]
  - Incorrect dose administered [Unknown]
  - Pain [Unknown]
